FAERS Safety Report 5087211-X (Version None)
Quarter: 2006Q3

REPORT INFORMATION
  Report Type: 
  Country: None (occurrence: None)
  Receive Date: 20060821
  Receipt Date: 20060811
  Transmission Date: 20061208
  Serious: Yes (Death)
  Sender: FDA-Public Use
  Company Number: 228610

PATIENT
  Age: 49 Year
  Sex: Male

DRUGS (5)
  1. MABTHERA (RITUXIMAB) [Suspect]
     Indication: B-CELL LYMPHOMA
     Dosage: 585 MG, INTRAVENOUS
     Route: 042
     Dates: start: 20060403
  2. CYCLOPHOSPHAMIDE [Suspect]
     Indication: B-CELL LYMPHOMA
     Dosage: 1170 MG, INTRAVENOUS
     Route: 042
     Dates: start: 20060403
  3. VINCRISTINE [Suspect]
     Indication: B-CELL LYMPHOMA
     Dosage: 2 MG, INTRAVENOUS
     Route: 042
     Dates: start: 20060403
  4. DOXORUBICIN HCL [Suspect]
     Indication: B-CELL LYMPHOMA
     Dosage: 70 MG, INTRAVENOUS
     Route: 042
     Dates: start: 20060403
  5. PREDNISOLONE [Suspect]
     Indication: B-CELL LYMPHOMA
     Dosage: 100 MG, ORAL
     Route: 048
     Dates: start: 20060403

REACTIONS (1)
  - PNEUMONIA [None]
